FAERS Safety Report 26201342 (Version 1)
Quarter: 2025Q4

REPORT INFORMATION
  Report Type: Spontaneous
  Country: EU (occurrence: EU)
  Receive Date: 20251226
  Receipt Date: 20251226
  Transmission Date: 20260119
  Serious: Yes (Other)
  Sender: UCB
  Company Number: EU-IPSEN Group, Research and Development-2025-29908

PATIENT
  Age: 13 Year
  Weight: 70.3 kg

DRUGS (7)
  1. KEPPRA [Suspect]
     Active Substance: LEVETIRACETAM
     Indication: Epilepsy
     Dosage: 1500 MICROGRAM
     Route: 061
  2. TOVORAFENIB [Suspect]
     Active Substance: TOVORAFENIB
     Indication: Optic glioma
     Dosage: 600 MILLIGRAM, WEEKLY (QW)
     Route: 061
  3. TOVORAFENIB [Suspect]
     Active Substance: TOVORAFENIB
     Dosage: 300 MILLIGRAM
  4. TOVORAFENIB [Suspect]
     Active Substance: TOVORAFENIB
     Dosage: 500 MILLIGRAM
  5. TOVORAFENIB [Suspect]
     Active Substance: TOVORAFENIB
     Dosage: 400 MILLIGRAM
  6. MINIRIN [Concomitant]
     Active Substance: DESMOPRESSIN ACETATE
     Indication: Diabetes mellitus
     Dosage: 180 MICROGRAM
  7. LEVOTHYROXINE [Concomitant]
     Active Substance: LEVOTHYROXINE
     Indication: Thyroid disorder
     Dosage: 112 MICROGRAM
     Route: 061

REACTIONS (5)
  - Hepatic cytolysis [Not Recovered/Not Resolved]
  - Haematotoxicity [Unknown]
  - Skin toxicity [Unknown]
  - Somnolence [Unknown]
  - Asthenia [Unknown]
